FAERS Safety Report 8275195-2 (Version None)
Quarter: 2012Q2

REPORT INFORMATION
  Report Type: 
  Country: None (occurrence: None)
  Receive Date: 20120411
  Receipt Date: 20120406
  Transmission Date: 20120825
  Serious: Yes (Life-Threatening, Other)
  Sender: FDA-Public Use
  Company Number: JP-PFIZER INC-2012058829

PATIENT
  Age: 59 Year
  Sex: Male
  Weight: 64 kg

DRUGS (8)
  1. LYRICA [Suspect]
     Indication: HYPOAESTHESIA
     Dosage: 75 MG, 2X/DAY
     Route: 048
     Dates: start: 20120130, end: 20120301
  2. MIGLITOL [Concomitant]
     Indication: DIABETES MELLITUS
     Dosage: 50 MG, 3X/DAY
     Route: 048
     Dates: start: 20110114, end: 20120301
  3. VITAMIN B12 [Suspect]
     Indication: HYPOAESTHESIA
     Dosage: 500 UG, 3X/DAY
     Route: 048
     Dates: start: 20120130, end: 20120301
  4. REBAMIPIDE [Suspect]
     Indication: HYPOAESTHESIA
     Dosage: 100 MG, 3X/DAY
     Route: 048
     Dates: start: 20120130, end: 20120301
  5. JANUVIA [Concomitant]
     Indication: DIABETES MELLITUS
     Dosage: 50 MG, 1X/DAY
     Route: 048
     Dates: start: 20111111, end: 20120301
  6. AMARYL [Concomitant]
     Indication: DIABETES MELLITUS
     Dosage: 3 MG, 1X/DAY
     Route: 048
     Dates: start: 20110114, end: 20120301
  7. LORCAM [Suspect]
     Indication: HYPOAESTHESIA
     Dosage: 4 MG, 3X/DAY
     Route: 048
     Dates: start: 20120130, end: 20120301
  8. BEZATOL - SLOW RELEASE [Concomitant]
     Indication: DYSLIPIDAEMIA
     Dosage: 200 MG, 2X/DAY
     Route: 048
     Dates: start: 20110114, end: 20120301

REACTIONS (6)
  - EUPHORIC MOOD [None]
  - SPEECH DISORDER [None]
  - LOSS OF CONSCIOUSNESS [None]
  - AMNESIA [None]
  - HYPOGLYCAEMIA [None]
  - DISORIENTATION [None]
